FAERS Safety Report 9006583 (Version 2)
Quarter: 2014Q2

REPORT INFORMATION
  Report Type: Spontaneous
  Country: US (occurrence: US)
  Receive Date: 20130110
  Receipt Date: 20140212
  Transmission Date: 20141212
  Serious: Yes (Hospitalization, Other)
  Sender: FDA-Public Use
  Company Number: US-ALEXION PHARMACEUTICALS INC.-A201202419

PATIENT
  Age: 85 Year
  Sex: Female

DRUGS (1)
  1. SOLIRIS 300MG [Suspect]
     Indication: HAEMOLYTIC URAEMIC SYNDROME
     Dosage: UNK
     Route: 042
     Dates: start: 201209

REACTIONS (10)
  - Meningitis [Unknown]
  - Headache [Recovered/Resolved]
  - Neck pain [Recovered/Resolved]
  - Pain [Unknown]
  - Candida infection [Unknown]
  - Ear infection [Unknown]
  - Sinusitis [Unknown]
  - Vomiting [Recovering/Resolving]
  - Infection [Unknown]
  - Musculoskeletal pain [Unknown]
